FAERS Safety Report 4374964-9 (Version None)
Quarter: 2004Q2

REPORT INFORMATION
  Report Type: 
  Country: None (occurrence: None)
  Receive Date: 20040604
  Receipt Date: 20040525
  Transmission Date: 20050107
  Serious: Yes (Death)
  Sender: FDA-Public Use
  Company Number: 2004AP02871

PATIENT
  Age: 71 Year
  Sex: Male

DRUGS (1)
  1. ACCOLATE [Suspect]
     Dosage: 40 MG DAILY PO
     Route: 048
     Dates: start: 20011002, end: 20021127

REACTIONS (1)
  - HEPATIC FUNCTION ABNORMAL [None]
